FAERS Safety Report 9455354 (Version 1)
Quarter: 2013Q3

REPORT INFORMATION
  Report Type: Report from Study
  Country: US (occurrence: US)
  Receive Date: 20130813
  Receipt Date: 20130813
  Transmission Date: 20140515
  Serious: Yes (Other)
  Sender: FDA-Public Use
  Company Number: PHHY2013US084624

PATIENT
  Age: 35 Year
  Sex: Female

DRUGS (7)
  1. GILENYA [Suspect]
     Indication: MULTIPLE SCLEROSIS
     Dosage: 0.5 MG, QD
     Route: 048
     Dates: start: 20110830, end: 20120727
  2. WELLBUTRIN [Concomitant]
     Dosage: 300 MG, UNK
  3. FAMCICLOVIR [Concomitant]
     Dosage: 250 MG, UNK
  4. NASONEX [Concomitant]
  5. ALDACTONE [Concomitant]
     Dosage: 25 MG, UNK
  6. ADDERALL [Concomitant]
  7. ZONISAMIDE [Concomitant]

REACTIONS (3)
  - Loss of consciousness [Recovering/Resolving]
  - Head injury [Recovering/Resolving]
  - Migraine [Recovering/Resolving]
